FAERS Safety Report 25199430 (Version 1)
Quarter: 2025Q2

REPORT INFORMATION
  Report Type: Spontaneous
  Country: GB (occurrence: GB)
  Receive Date: 20250415
  Receipt Date: 20250415
  Transmission Date: 20250716
  Serious: Yes (Hospitalization)
  Sender: MYLAN
  Company Number: GB-MYLANLABS-2025M1031903

PATIENT
  Age: 72 Year
  Sex: Female

DRUGS (12)
  1. VANCOMYCIN [Suspect]
     Active Substance: VANCOMYCIN
     Indication: Antibiotic therapy
  2. VANCOMYCIN [Suspect]
     Active Substance: VANCOMYCIN
     Indication: Streptococcal infection
  3. VANCOMYCIN [Suspect]
     Active Substance: VANCOMYCIN
     Indication: Brain abscess
  4. CEFTRIAXONE [Suspect]
     Active Substance: CEFTRIAXONE
     Indication: Antibiotic therapy
  5. CEFTRIAXONE [Suspect]
     Active Substance: CEFTRIAXONE
     Indication: Streptococcal infection
  6. CEFTRIAXONE [Suspect]
     Active Substance: CEFTRIAXONE
     Indication: Brain abscess
  7. LINEZOLID [Suspect]
     Active Substance: LINEZOLID
     Indication: Antibiotic therapy
  8. LINEZOLID [Suspect]
     Active Substance: LINEZOLID
     Indication: Streptococcal infection
  9. LINEZOLID [Suspect]
     Active Substance: LINEZOLID
     Indication: Brain abscess
  10. MEROPENEM [Suspect]
     Active Substance: MEROPENEM
     Indication: Antibiotic therapy
  11. MEROPENEM [Suspect]
     Active Substance: MEROPENEM
     Indication: Streptococcal infection
  12. MEROPENEM [Suspect]
     Active Substance: MEROPENEM
     Indication: Brain abscess

REACTIONS (2)
  - Drug ineffective [Unknown]
  - Rash [Unknown]
